FAERS Safety Report 8283547-X (Version None)
Quarter: 2012Q2

REPORT INFORMATION
  Report Type: 
  Country: None (occurrence: None)
  Receive Date: 20120413
  Receipt Date: 20120405
  Transmission Date: 20120825
  Serious: Yes (Hospitalization)
  Sender: FDA-Public Use
  Company Number: FI-BRISTOL-MYERS SQUIBB COMPANY-16503666

PATIENT
  Age: 45 Year
  Sex: Female

DRUGS (1)
  1. ABILIFY [Suspect]
     Indication: PSYCHOTIC DISORDER
     Dosage: 26JAN2012:DOSE INCREASED TO 22.5MG
     Route: 048
     Dates: start: 20111230, end: 20120315

REACTIONS (4)
  - SUICIDAL IDEATION [None]
  - MUSCULOSKELETAL STIFFNESS [None]
  - FLAT AFFECT [None]
  - ANXIETY [None]
